FAERS Safety Report 13152403 (Version 2)
Quarter: 2019Q2

REPORT INFORMATION
  Report Type: Report from Study
  Country: US (occurrence: US)
  Receive Date: 20170125
  Receipt Date: 20190410
  Transmission Date: 20190711
  Serious: Yes (Death, Hospitalization)
  Sender: FDA-Public Use
  Company Number: US-ACTELION-A-US2017-148903

PATIENT
  Age: 86 Year
  Sex: Female

DRUGS (6)
  1. ELIQUIS [Concomitant]
     Active Substance: APIXABAN
  2. UPTRAVI [Suspect]
     Active Substance: SELEXIPAG
     Indication: PULMONARY ARTERIAL HYPERTENSION
     Dosage: 800 MCG, BID
     Route: 048
     Dates: start: 20160609
  3. WARFARIN [Concomitant]
     Active Substance: WARFARIN
  4. SILDENAFIL. [Concomitant]
     Active Substance: SILDENAFIL
     Indication: PULMONARY ARTERIAL HYPERTENSION
  5. UPTRAVI [Suspect]
     Active Substance: SELEXIPAG
     Dosage: 200 MCG, BID
     Route: 048
  6. DILTIAZEM. [Concomitant]
     Active Substance: DILTIAZEM

REACTIONS (3)
  - Death [Fatal]
  - Fall [Unknown]
  - Hip fracture [Unknown]

NARRATIVE: CASE EVENT DATE: 201612
